FAERS Safety Report 8337602-6 (Version None)
Quarter: 2012Q2

REPORT INFORMATION
  Report Type: 
  Country: None (occurrence: None)
  Receive Date: 20120504
  Receipt Date: 20120501
  Transmission Date: 20120825
  Serious: Yes (Other)
  Sender: FDA-Public Use
  Company Number: US-PFIZER INC-2012074925

PATIENT
  Sex: Male

DRUGS (2)
  1. LIPITOR [Suspect]
     Dosage: 40 MG, 1X/DAY
     Route: 048
  2. INSULIN [Concomitant]
     Dosage: 70/30

REACTIONS (2)
  - BLOOD CHOLESTEROL INCREASED [None]
  - TYPE 1 DIABETES MELLITUS [None]
